FAERS Safety Report 8249347-1 (Version None)
Quarter: 2012Q2

REPORT INFORMATION
  Report Type: 
  Country: None (occurrence: None)
  Receive Date: 20120402
  Receipt Date: 20120321
  Transmission Date: 20120825
  Serious: Yes (Hospitalization)
  Sender: FDA-Public Use
  Company Number: JP-JNJFOC-20110906592

PATIENT
  Sex: Female
  Weight: 46 kg

DRUGS (26)
  1. REMICADE [Suspect]
     Indication: PSORIATIC ARTHROPATHY
     Route: 042
     Dates: start: 20110808
  2. REMICADE [Suspect]
     Route: 042
     Dates: start: 20110614
  3. REMICADE [Suspect]
     Indication: PSORIASIS
     Route: 042
     Dates: start: 20110808
  4. REMICADE [Suspect]
     Route: 042
     Dates: start: 20101201
  5. NEOISCOTIN [Suspect]
     Indication: TUBERCULOSIS
     Route: 048
     Dates: start: 20110909
  6. ETHAMBUTOL HYDROCHLORIDE [Suspect]
     Route: 048
     Dates: start: 20111027
  7. NEOISCOTIN [Suspect]
     Route: 048
     Dates: start: 20101025, end: 20110517
  8. ETHAMBUTOL HYDROCHLORIDE [Suspect]
     Indication: TUBERCULOSIS
     Route: 048
     Dates: start: 20110909, end: 20111026
  9. REMICADE [Suspect]
     Route: 042
     Dates: start: 20101116
  10. REMICADE [Suspect]
     Route: 042
     Dates: start: 20110419
  11. LOXOPROFEN SODIUM [Concomitant]
     Route: 048
  12. REMICADE [Suspect]
     Route: 042
     Dates: start: 20110614
  13. REMICADE [Suspect]
     Route: 042
     Dates: start: 20101228
  14. REMICADE [Suspect]
     Route: 042
     Dates: start: 20110222
  15. ZITHROMAX [Concomitant]
     Route: 048
     Dates: start: 20110822
  16. REMICADE [Suspect]
     Route: 042
     Dates: start: 20101228
  17. VOLTAREN [Concomitant]
     Route: 048
     Dates: start: 20110822
  18. URSO 250 [Concomitant]
     Route: 048
  19. REMICADE [Suspect]
     Route: 042
     Dates: start: 20101201
  20. REMICADE [Suspect]
     Route: 042
     Dates: start: 20110222
  21. RIFADIN [Suspect]
     Indication: TUBERCULOSIS
     Route: 048
     Dates: start: 20110909
  22. PYRIDOXAL PHOSPHATE [Concomitant]
     Route: 048
  23. REMICADE [Suspect]
     Route: 042
     Dates: start: 20101116
  24. REBAMIPIDE [Concomitant]
     Route: 048
  25. REMICADE [Suspect]
     Route: 042
     Dates: start: 20110419
  26. PYRAZINAMIDE [Suspect]
     Indication: TUBERCULOSIS
     Route: 048
     Dates: start: 20110909, end: 20111026

REACTIONS (3)
  - HEPATIC FUNCTION ABNORMAL [None]
  - PERITONEAL TUBERCULOSIS [None]
  - ASCITES [None]
